FAERS Safety Report 8597870-2 (Version None)
Quarter: 2012Q3

REPORT INFORMATION
  Report Type: 
  Country: None (occurrence: None)
  Receive Date: 20120816
  Receipt Date: 20120814
  Transmission Date: 20120928
  Serious: Yes (Death, Other)
  Sender: FDA-Public Use
  Company Number: PHHY2012NL063670

PATIENT
  Sex: Female
  Weight: 75 kg

DRUGS (14)
  1. ASPIRIN [Concomitant]
     Dosage: 80 MG, DAILY
  2. PERSANTINE [Concomitant]
     Dosage: 200 MG, DAILY
  3. EXELON [Concomitant]
     Dosage: 4.6 MG, QD
  4. NEXIUM [Concomitant]
     Dosage: 20 MG, DAILY
  5. CARBIDOPA + LEVODOPA [Concomitant]
     Dosage: 3 DF, (100/25MG )
  6. MOVICOLON [Concomitant]
     Dosage: 1DD1
  7. TRIAMTEREN [Concomitant]
     Dosage: 50 MG, DAILY
  8. AMOXICILLIN AND CLAVULANATE POTASSIUM [Concomitant]
     Dosage: 2 DF,(250/62.5MG) DAILY
     Dates: start: 20120525, end: 20120604
  9. TRIMETHOPRIM [Concomitant]
     Dosage: 300 MG, DAILY
  10. ARIMIDEX [Concomitant]
     Dosage: 1 MG, DAILY
  11. CLOZAPINE [Suspect]
     Indication: DEMENTIA
     Dosage: 12.5 MG, TWICE DAILY
     Dates: start: 20120423, end: 20120604
  12. ACETAMINOPHEN [Concomitant]
     Dosage: 500 MG, PRN
  13. SEROQUEL [Concomitant]
     Dosage: 25 MG, DAILY
  14. CALCIUM CARBONATE W/COLECALCIFEROL [Concomitant]
     Dosage: 500MG/400IE DAILY

REACTIONS (5)
  - SOMNOLENCE [None]
  - AGRANULOCYTOSIS [None]
  - HYPOPHAGIA [None]
  - LEUKOPENIA [None]
  - RENAL DISORDER [None]
